FAERS Safety Report 11613858 (Version 2)
Quarter: 2015Q4

REPORT INFORMATION
  Report Type: Spontaneous
  Country: US (occurrence: US)
  Receive Date: 20151008
  Receipt Date: 20151012
  Transmission Date: 20160304
  Serious: Yes (Death, Other)
  Sender: FDA-Public Use
  Company Number: PHHY2015US119649

PATIENT
  Age: 63 Year
  Sex: Male

DRUGS (3)
  1. DEXAMETHASONE. [Suspect]
     Active Substance: DEXAMETHASONE
     Dosage: 0.75 MG, QD
     Route: 065
  2. AMIODARONE [Suspect]
     Active Substance: AMIODARONE
     Indication: PROPHYLAXIS
     Route: 065
  3. DEXAMETHASONE. [Suspect]
     Active Substance: DEXAMETHASONE
     Indication: PRODUCT USED FOR UNKNOWN INDICATION
     Route: 065

REACTIONS (10)
  - Hyperthyroidism [Unknown]
  - Hypoxia [Unknown]
  - Pneumocystis jirovecii pneumonia [Fatal]
  - Hypotension [Unknown]
  - Acute kidney injury [Unknown]
  - Anuria [Unknown]
  - Respiratory acidosis [Unknown]
  - Tachypnoea [Unknown]
  - Oliguria [Unknown]
  - Cardiac arrest [Unknown]
